FAERS Safety Report 5833921-3 (Version None)
Quarter: 2008Q3

REPORT INFORMATION
  Report Type: 
  Country: None (occurrence: None)
  Receive Date: 20080805
  Receipt Date: 20080731
  Transmission Date: 20090109
  Serious: Yes (Other)
  Sender: FDA-Public Use
  Company Number: B0530231A

PATIENT
  Age: 67 Year
  Sex: Female
  Weight: 55 kg

DRUGS (8)
  1. VALTREX [Suspect]
     Indication: HERPES ZOSTER
     Dosage: 1000MG PER DAY
     Route: 048
     Dates: start: 20080715, end: 20080716
  2. CALTAN [Concomitant]
     Dosage: 1000MG THREE TIMES PER DAY
     Route: 048
  3. LANSOPRAZOLE [Concomitant]
     Dosage: 15MG PER DAY
     Route: 048
  4. NORVASC [Concomitant]
     Dosage: 5MG PER DAY
     Route: 048
  5. SELBEX [Concomitant]
     Dosage: 50MG THREE TIMES PER DAY
     Route: 048
  6. ALOSENN [Concomitant]
     Dosage: 1G PER DAY
     Route: 048
  7. ALLOPURINOL [Concomitant]
     Dosage: 100MG PER DAY
     Route: 048
  8. PURSENNID [Concomitant]
     Dosage: 72MG PER DAY
     Route: 048

REACTIONS (4)
  - DEAFNESS [None]
  - DIZZINESS [None]
  - DYSARTHRIA [None]
  - TINNITUS [None]
